FAERS Safety Report 11151518 (Version 1)
Quarter: 2015Q2

REPORT INFORMATION
  Report Type: Report from Study
  Country: US (occurrence: US)
  Receive Date: 20150601
  Receipt Date: 20150601
  Transmission Date: 20150821
  Serious: Yes (Other)
  Sender: FDA-Public Use
  Company Number: US-BIOGENIDEC-2015BI071242

PATIENT
  Sex: Female

DRUGS (4)
  1. TECFIDERA [Suspect]
     Active Substance: DIMETHYL FUMARATE
     Indication: MULTIPLE SCLEROSIS
  2. TECFIDERA [Suspect]
     Active Substance: DIMETHYL FUMARATE
     Indication: MULTIPLE SCLEROSIS
     Route: 048
     Dates: start: 20150304
  3. TECFIDERA [Suspect]
     Active Substance: DIMETHYL FUMARATE
     Indication: MULTIPLE SCLEROSIS
  4. TECFIDERA [Suspect]
     Active Substance: DIMETHYL FUMARATE
     Indication: MULTIPLE SCLEROSIS
     Route: 048
     Dates: start: 20150306

REACTIONS (21)
  - Myocardial infarction [Unknown]
  - Swelling face [Unknown]
  - General symptom [Unknown]
  - Dizziness [Unknown]
  - Scratch [Not Recovered/Not Resolved]
  - Abdominal distension [Not Recovered/Not Resolved]
  - Rash pruritic [Not Recovered/Not Resolved]
  - Impaired self-care [Unknown]
  - Feeling hot [Unknown]
  - Sensory disturbance [Unknown]
  - Reading disorder [Unknown]
  - Amnesia [Unknown]
  - Angina pectoris [Unknown]
  - Head discomfort [Unknown]
  - Rash [Not Recovered/Not Resolved]
  - Prescribed overdose [Unknown]
  - Paraesthesia [Unknown]
  - Malaise [Unknown]
  - Cognitive disorder [Unknown]
  - Flushing [Not Recovered/Not Resolved]
  - Abdominal pain upper [Not Recovered/Not Resolved]
